FAERS Safety Report 20436795 (Version 5)
Quarter: 2022Q3

REPORT INFORMATION
  Report Type: Report from Study
  Country: US (occurrence: None)
  Receive Date: 20220207
  Receipt Date: 20220920
  Transmission Date: 20221027
  Serious: Yes (Death, Hospitalization, Other)
  Sender: FDA-Public Use
  Company Number: US-ROCHE-2834958

PATIENT
  Age: 56 Year
  Sex: Male
  Weight: 74.2 kg

DRUGS (2)
  1. ATEZOLIZUMAB [Suspect]
     Active Substance: ATEZOLIZUMAB
     Indication: Bladder transitional cell carcinoma
     Dosage: LAST ADMINISTERED DATE 26/MAR/2021.
     Route: 041
     Dates: start: 20210326, end: 20210326
  2. INTERLEUKIN-7 HUMAN RECOMBINANT [Suspect]
     Active Substance: INTERLEUKIN-7 HUMAN RECOMBINANT
     Indication: Bladder transitional cell carcinoma
     Dosage: LAST ADMINISTERED DATE 02-APR-2021
     Route: 065
     Dates: start: 20210319

REACTIONS (12)
  - Hypercalcaemia [Unknown]
  - Neoplasm [Fatal]
  - Atrial flutter [Recovered/Resolved]
  - Blood creatinine increased [Recovered/Resolved]
  - Disease progression [Fatal]
  - Enterocolitis infectious [Recovered/Resolved]
  - Generalised oedema [Unknown]
  - Hyperkalaemia [Recovered/Resolved]
  - Sepsis [Recovered/Resolved]
  - Urinary tract infection [Unknown]
  - Deep vein thrombosis [Unknown]
  - Anaemia [Unknown]

NARRATIVE: CASE EVENT DATE: 20210405
